FAERS Safety Report 6927994-4 (Version None)
Quarter: 2010Q3

REPORT INFORMATION
  Report Type: 
  Country: None (occurrence: None)
  Receive Date: 20100817
  Receipt Date: 20100809
  Transmission Date: 20110219
  Serious: Yes (Hospitalization)
  Sender: FDA-Public Use
  Company Number: CA-B.I. PHARMACEUTICALS,INC./RIDGEFIELD-2008-CN-00236CN

PATIENT
  Sex: Female

DRUGS (15)
  1. AGGRENOX [Suspect]
     Dosage: BID
     Route: 048
     Dates: start: 20080502, end: 20080513
  2. COLACE [Concomitant]
     Dosage: 100 MG
     Route: 048
  3. COZAAR [Concomitant]
  4. CRESTOR [Concomitant]
  5. DIGOXIN [Concomitant]
     Dosage: 0.125 MG
     Route: 048
  6. DIGOXIN [Concomitant]
     Dosage: 0.125MG Q2D
     Route: 048
  7. DIAZIDE [Concomitant]
     Dosage: 50MG/25MG OD
     Route: 048
  8. TRAZODONE HCL [Concomitant]
     Dosage: 25 MG
     Route: 048
  9. ACETAMINOPHEN [Concomitant]
  10. NITRO SPRAY [Concomitant]
  11. LOSARTAN POTASSIUM [Concomitant]
     Dosage: 100 MG
     Route: 048
  12. LOSARTAN POTASSIUM [Concomitant]
     Dosage: 50 MG
     Route: 048
  13. ROSUVUSTATIN [Concomitant]
     Dosage: 20 MG
     Route: 048
  14. ACETAMINOPHEN [Concomitant]
     Dosage: 1-2 Q4H PRN
     Route: 048
  15. ACETAMINOPHEN [Concomitant]
     Dosage: Q4H PRN
     Route: 054

REACTIONS (3)
  - NAUSEA [None]
  - RENAL FAILURE ACUTE [None]
  - VOMITING [None]
